FAERS Safety Report 9154409 (Version 1)
Quarter: 2013Q1

REPORT INFORMATION
  Report Type: Spontaneous
  Country: NO (occurrence: NO)
  Receive Date: 20130311
  Receipt Date: 20130311
  Transmission Date: 20140127
  Serious: Yes (Hospitalization)
  Sender: FDA-Public Use
  Company Number: NO-PFIZER INC-2013080563

PATIENT
  Age: 66 Year
  Sex: Male

DRUGS (4)
  1. SOMAC [Suspect]
     Dosage: 40 MG, UNK
     Route: 048
     Dates: start: 200906
  2. NEXIUM [Suspect]
     Dosage: 40 MG, UNK
     Route: 048
     Dates: start: 200906
  3. VALLERGAN [Concomitant]
     Indication: INSOMNIA
     Dosage: 20 MG, 1X/DAY
     Route: 048
  4. TRIOBE [Concomitant]
     Indication: ALCOHOL ABUSE
     Dosage: 1 DF, 1X/DAY
     Route: 048

REACTIONS (3)
  - Hypokalaemia [Unknown]
  - Hypocalcaemia [Unknown]
  - Hypomagnesaemia [Unknown]
